FAERS Safety Report 20631646 (Version 1)
Quarter: 2022Q1

REPORT INFORMATION
  Report Type: Spontaneous
  Country: DE (occurrence: DE)
  Receive Date: 20220324
  Receipt Date: 20220324
  Transmission Date: 20220424
  Serious: Yes (Hospitalization, Other)
  Sender: FDA-Public Use
  Company Number: DE-TORRENT-00022126

PATIENT
  Age: 69 Year
  Sex: Male
  Weight: 101 kg

DRUGS (3)
  1. CLOPIDOGREL [Suspect]
     Active Substance: CLOPIDOGREL BISULFATE
     Indication: Anticoagulant therapy
     Dosage: UNKNOWN
     Route: 065
     Dates: start: 201804, end: 20200327
  2. PHENPROCOUMON [Suspect]
     Active Substance: PHENPROCOUMON
     Indication: Anticoagulant therapy
     Dosage: UNKNOWN
     Route: 065
     Dates: start: 2016, end: 20200327
  3. SEMAGLUTIDE [Concomitant]
     Active Substance: SEMAGLUTIDE
     Indication: Type 2 diabetes mellitus
     Dosage: 1.34 MG/ML PDS290, PLACEBO PDS290
     Route: 065
     Dates: start: 20191223

REACTIONS (2)
  - Intestinal haemorrhage [Unknown]
  - Iron deficiency anaemia [Recovered/Resolved]
